FAERS Safety Report 8869923 (Version 1)
Quarter: 2012Q4

REPORT INFORMATION
  Report Type: 
  Country: US (occurrence: US)
  Receive Date: 20121026
  Receipt Date: 20121026
  Transmission Date: 20130627
  Serious: No
  Sender: FDA-Public Use
  Company Number: US-AMGEN-USASP2012045888

PATIENT
  Age: 64 Year
  Sex: Male

DRUGS (19)
  1. ENBREL [Suspect]
     Indication: PRODUCT USED FOR UNKNOWN INDICATION
     Dosage: 50 mg, qwk
     Route: 058
  2. FUROSEMIDE [Concomitant]
     Dosage: 20 mg, UNK
  3. METHOTREXATE [Concomitant]
     Dosage: 2.5 mg, UNK
  4. ZYRTEC [Concomitant]
     Dosage: 5 mg, UNK
  5. PROCARDIA                          /00340701/ [Concomitant]
     Dosage: 60 mg, UNK
  6. VIAGRA [Concomitant]
     Dosage: 100 mg, UNK
  7. NIASPAN [Concomitant]
     Dosage: 1000 ER
  8. NASONEX [Concomitant]
     Dosage: 50 mg, UNK
  9. LANTUS [Concomitant]
     Dosage: 100 ml, UNK
  10. LISINOPRIL [Concomitant]
     Dosage: 20 mg, UNK
  11. PRAVASTATIN [Concomitant]
     Dosage: 40 mg, UNK
  12. METFORMIN [Concomitant]
     Dosage: 750 mg, UNK
  13. FERROUS FUMARATE [Concomitant]
  14. LEVOTHYROXIN [Concomitant]
     Dosage: 100 MCG
  15. CIPROFLOXACIN [Concomitant]
     Dosage: 1000 mg, UNK
  16. ERGOCALCIFEROL [Concomitant]
     Dosage: 5000OUNT
  17. ASPIRE [Concomitant]
     Dosage: 325 mg, ER
  18. ATARAX                             /00058402/ [Concomitant]
     Dosage: 10 mg /5ml
  19. FOLIC ACID [Concomitant]
     Dosage: 20 mg, UNK

REACTIONS (3)
  - Bronchitis [Unknown]
  - Infection [Unknown]
  - Urinary tract infection [Unknown]
